FAERS Safety Report 6803806-4 (Version None)
Quarter: 2010Q2

REPORT INFORMATION
  Report Type: 
  Country: None (occurrence: None)
  Receive Date: 20100628
  Receipt Date: 20100616
  Transmission Date: 20101027
  Serious: Yes (Other)
  Sender: FDA-Public Use
  Company Number: JP-NAPPMUNDI-MAG-2010-0001264

PATIENT
  Sex: Female

DRUGS (18)
  1. OXYCODONE HYDROCHLORIDE [Suspect]
     Indication: IDIOPATHIC PULMONARY FIBROSIS
     Dosage: 5 MG, PRN
     Route: 048
     Dates: start: 20091125, end: 20091224
  2. OXYCODONE HYDROCHLORIDE [Suspect]
     Indication: COUGH
  3. OXYCODONE HYDROCHLORIDE [Suspect]
     Indication: DYSPNOEA
  4. MORPHINE                           /00036303/ [Suspect]
     Indication: IDIOPATHIC PULMONARY FIBROSIS
     Dosage: 10 MG, PRN
     Route: 048
     Dates: start: 20091124, end: 20091124
  5. MORPHINE                           /00036303/ [Suspect]
     Indication: COUGH
  6. MORPHINE                           /00036303/ [Suspect]
     Indication: DYSPNOEA
  7. PIRFENIDONE [Concomitant]
     Indication: IDIOPATHIC PULMONARY FIBROSIS
     Dosage: 200 MG, TID
     Route: 048
     Dates: start: 20090715, end: 20090728
  8. PIRFENIDONE [Concomitant]
     Dosage: 400 MG, TID
     Route: 048
     Dates: start: 20090729, end: 20091007
  9. PIRFENIDONE [Concomitant]
     Dosage: 600 MG, TID
     Route: 048
     Dates: start: 20091008, end: 20091217
  10. SPIRIVA [Concomitant]
     Indication: IDIOPATHIC PULMONARY FIBROSIS
     Dosage: 18 MCG, DAILY
     Route: 048
  11. RIZABEN [Concomitant]
     Indication: IDIOPATHIC PULMONARY FIBROSIS
     Dosage: 300 MG, DAILY
     Route: 048
  12. KLARICID [Concomitant]
     Indication: IDIOPATHIC PULMONARY FIBROSIS
     Dosage: 200 MG, DAILY
     Route: 048
  13. HOKUNALIN [Concomitant]
     Indication: IDIOPATHIC PULMONARY FIBROSIS
     Dosage: 0.5 MG, DAILY
     Route: 062
  14. MAGLAX [Concomitant]
     Indication: IDIOPATHIC PULMONARY FIBROSIS
     Dosage: 1980 MG, DAILY
     Route: 048
  15. ACINON [Concomitant]
     Indication: IDIOPATHIC PULMONARY FIBROSIS
     Dosage: 150 MG, DAILY
     Route: 048
  16. NOVAMIN                            /00013301/ [Concomitant]
     Indication: IDIOPATHIC PULMONARY FIBROSIS
     Dosage: 5 MG, DAILY
     Route: 048
     Dates: start: 20091125, end: 20091224
  17. FLOMOX [Concomitant]
     Dosage: 300 MG, DAILY
     Route: 048
     Dates: start: 20091211, end: 20091213
  18. FAROM [Concomitant]
     Dosage: 600 MG, DAILY
     Route: 048
     Dates: start: 20091214, end: 20091214

REACTIONS (2)
  - ANAEMIA [None]
  - HEPATIC FUNCTION ABNORMAL [None]
